FAERS Safety Report 5979248-0 (Version None)
Quarter: 2008Q4

REPORT INFORMATION
  Report Type: 
  Country: None (occurrence: None)
  Receive Date: 20081204
  Receipt Date: 20080912
  Transmission Date: 20090506
  Serious: No
  Sender: FDA-Public Use
  Company Number: US-ABBOTT-08P-163-0476159-00

PATIENT
  Sex: Female

DRUGS (2)
  1. TRICOR [Suspect]
     Indication: BLOOD CHOLESTEROL INCREASED
     Dosage: DAILY
     Route: 048
     Dates: start: 20080701
  2. TRICOR [Suspect]
     Indication: BLOOD TRIGLYCERIDES INCREASED

REACTIONS (1)
  - BLOOD CREATININE INCREASED [None]
